FAERS Safety Report 4440851-0 (Version None)
Quarter: 2004Q3

REPORT INFORMATION
  Report Type: 
  Country: None (occurrence: None)
  Receive Date: 20040903
  Receipt Date: 20040608
  Transmission Date: 20050211
  Serious: Yes (Hospitalization)
  Sender: FDA-Public Use
  Company Number: DE-GLAXOSMITHKLINE-D0043956A

PATIENT
  Age: 55 Year
  Sex: Female

DRUGS (2)
  1. SOSTRIL [Suspect]
     Route: 048
     Dates: end: 20020807
  2. MULTIPLE MEDICATIONS [Suspect]
     Route: 065

REACTIONS (1)
  - TOXIC EPIDERMAL NECROLYSIS [None]
